FAERS Safety Report 15980673 (Version 1)
Quarter: 2019Q1

REPORT INFORMATION
  Report Type: Spontaneous
  Country: JP (occurrence: JP)
  Receive Date: 20190219
  Receipt Date: 20190219
  Transmission Date: 20190418
  Serious: Yes (Other)
  Sender: FDA-Public Use
  Company Number: JP-BAYER-2019-032935

PATIENT
  Age: 75 Year
  Sex: Male

DRUGS (1)
  1. XOFIGO [Suspect]
     Active Substance: RADIUM RA-223 DICHLORIDE
     Indication: HORMONE-REFRACTORY PROSTATE CANCER
     Dosage: 1 DF, Q1MON
     Route: 042
     Dates: start: 20181122, end: 20190211

REACTIONS (4)
  - Platelet count decreased [Not Recovered/Not Resolved]
  - Nausea [Recovering/Resolving]
  - Haemoglobin decreased [Not Recovered/Not Resolved]
  - Hormone-refractory prostate cancer [None]

NARRATIVE: CASE EVENT DATE: 20190131
